FAERS Safety Report 21382075 (Version 2)
Quarter: 2022Q4

REPORT INFORMATION
  Report Type: Spontaneous
  Country: CH (occurrence: CH)
  Receive Date: 20220927
  Receipt Date: 20221003
  Transmission Date: 20230112
  Serious: Yes (Life-Threatening, Hospitalization, Other)
  Sender: FDA-Public Use
  Company Number: CH-MYLANLABS-2022M1092086

PATIENT
  Age: 68 Year
  Sex: Female

DRUGS (10)
  1. AZACITIDINE [Suspect]
     Active Substance: AZACITIDINE
     Indication: Acute myeloid leukaemia
     Dosage: UNK, 75MG/M^2 DURING 7 DAYS (DAY 1 TO DAY7)
     Route: 065
     Dates: start: 20220901
  2. AZACITIDINE [Suspect]
     Active Substance: AZACITIDINE
     Indication: FLT3 gene mutation
  3. AZACITIDINE [Suspect]
     Active Substance: AZACITIDINE
     Indication: NPM1 gene mutation
  4. VENETOCLAX [Suspect]
     Active Substance: VENETOCLAX
     Indication: Acute myeloid leukaemia
     Dosage: DAY 1 100MG, DAY 2 200MG, UNTIL 400MG PER DAY FROM DAY 3 ON,ADAPTED TO 200MG PER DAY
     Route: 065
  5. VENETOCLAX [Suspect]
     Active Substance: VENETOCLAX
     Indication: FLT3 gene mutation
  6. FLUCONAZOLE [Concomitant]
     Active Substance: FLUCONAZOLE
     Indication: Product used for unknown indication
     Dosage: UNK
     Route: 065
  7. AZACITIDINE [Concomitant]
     Active Substance: AZACITIDINE
     Indication: Acute myeloid leukaemia
     Dosage: UNK
     Route: 065
  8. AZACITIDINE [Concomitant]
     Active Substance: AZACITIDINE
     Indication: FLT3 gene mutation
  9. RYDAPT [Concomitant]
     Active Substance: MIDOSTAURIN
     Indication: Acute myeloid leukaemia
     Dosage: UNK, T 50MG X2 SINCE DAY 9, PLANNED UNTIL DAY 21,
     Route: 065
  10. RYDAPT [Concomitant]
     Active Substance: MIDOSTAURIN
     Indication: FLT3 gene mutation

REACTIONS (2)
  - Agranulocytosis [Not Recovered/Not Resolved]
  - Off label use [Unknown]

NARRATIVE: CASE EVENT DATE: 20220906
